FAERS Safety Report 7550707-2 (Version None)
Quarter: 2011Q2

REPORT INFORMATION
  Report Type: 
  Country: None (occurrence: None)
  Receive Date: 20110616
  Receipt Date: 20110606
  Transmission Date: 20111010
  Serious: Yes (Hospitalization, Disabling, Other)
  Sender: FDA-Public Use
  Company Number: US-ELI_LILLY_AND_COMPANY-US201106002471

PATIENT
  Sex: Male

DRUGS (4)
  1. HUMALOG [Suspect]
     Indication: DIABETES MELLITUS
     Dosage: UNK
     Route: 058
  2. HUMALOG [Suspect]
  3. HUMULIN N [Suspect]
  4. ANTIDEPRESSANTS [Concomitant]
     Dosage: UNK

REACTIONS (9)
  - HYPOGLYCAEMIA [None]
  - ARTHRALGIA [None]
  - HEADACHE [None]
  - VISUAL IMPAIRMENT [None]
  - BLINDNESS UNILATERAL [None]
  - DIABETES MELLITUS INADEQUATE CONTROL [None]
  - DISTURBANCE IN ATTENTION [None]
  - EYE HAEMORRHAGE [None]
  - NEUROPATHY PERIPHERAL [None]
